FAERS Safety Report 24886149 (Version 1)
Quarter: 2025Q1

REPORT INFORMATION
  Report Type: Spontaneous
  Country: US (occurrence: US)
  Receive Date: 20250125
  Receipt Date: 20250125
  Transmission Date: 20250408
  Serious: No
  Sender: TORRENT PHARMA INC.
  Company Number: US-TORRENT-00014069

PATIENT
  Sex: Female

DRUGS (1)
  1. ZOLPIDEM [Suspect]
     Active Substance: ZOLPIDEM TARTRATE
     Indication: Sleep disorder
     Dosage: HALF A TABLET A DAY (5 MG), LITTLE ORANGE PILLS
     Route: 048

REACTIONS (3)
  - Drug ineffective [Unknown]
  - Wrong technique in product usage process [Unknown]
  - Product administration interrupted [Unknown]
